FAERS Safety Report 13168246 (Version 2)
Quarter: 2017Q1

REPORT INFORMATION
  Report Type: Spontaneous
  Country: US (occurrence: US)
  Receive Date: 20170131
  Receipt Date: 20170222
  Transmission Date: 20170428
  Serious: No
  Sender: FDA-Public Use
  Company Number: US-GILEAD-2017-0255630

PATIENT
  Age: 32 Year
  Sex: Male
  Weight: 69.93 kg

DRUGS (2)
  1. TRUVADA [Suspect]
     Active Substance: EMTRICITABINE\TENOFOVIR DISOPROXIL FUMARATE
     Indication: PROPHYLAXIS AGAINST HIV INFECTION
     Route: 048
  2. B VITAMIN COMP                     /00003501/ [Concomitant]

REACTIONS (3)
  - Renal pain [Recovered/Resolved]
  - Drug dose omission [Recovered/Resolved]
  - Dark circles under eyes [Recovered/Resolved]
